FAERS Safety Report 15551565 (Version 2)
Quarter: 2019Q1

REPORT INFORMATION
  Report Type: Spontaneous
  Country: US (occurrence: US)
  Receive Date: 20181025
  Receipt Date: 20190130
  Transmission Date: 20190417
  Serious: Yes (Other)
  Sender: FDA-Public Use
  Company Number: US-DSJP-DSU-2017-147242

PATIENT

DRUGS (2)
  1. BENICAR [Suspect]
     Active Substance: OLMESARTAN MEDOXOMIL
     Indication: PRODUCT USED FOR UNKNOWN INDICATION
     Dosage: 5 MG, BID
     Route: 048
     Dates: start: 20100106
  2. BENICAR [Suspect]
     Active Substance: OLMESARTAN MEDOXOMIL
     Dosage: 10 MG, QD
     Dates: start: 20160927

REACTIONS (12)
  - Hiatus hernia [Not Recovered/Not Resolved]
  - Gastritis [Recovered/Resolved]
  - Large intestine polyp [Unknown]
  - Weight decreased [Recovered/Resolved]
  - Chronic kidney disease [Unknown]
  - Oesophageal obstruction [Unknown]
  - Gastrooesophageal reflux disease [Recovering/Resolving]
  - Dehydration [Recovered/Resolved]
  - Haemorrhoids [Unknown]
  - Diarrhoea [Recovered/Resolved]
  - Barrett^s oesophagus [Unknown]
  - Diverticulum intestinal [Unknown]

NARRATIVE: CASE EVENT DATE: 20131021
